FAERS Safety Report 5846727-6 (Version None)
Quarter: 2008Q3

REPORT INFORMATION
  Report Type: 
  Country: None (occurrence: None)
  Receive Date: 20080815
  Receipt Date: 20080807
  Transmission Date: 20090109
  Serious: Yes (Hospitalization, Other)
  Sender: FDA-Public Use
  Company Number: JP-ABBOTT-08P-087-0469166-00

PATIENT
  Age: 16 Year
  Sex: Female
  Weight: 28 kg

DRUGS (7)
  1. CLARITH DRY SYRUP [Suspect]
     Indication: BRONCHITIS CHRONIC
     Route: 048
     Dates: start: 20051115, end: 20071107
  2. PRANLUKAST [Suspect]
     Indication: ASTHMA
     Route: 048
     Dates: start: 20050324, end: 20071107
  3. VALPROATE SODIUM [Suspect]
     Indication: EPILEPSY
     Route: 048
     Dates: start: 20050324, end: 20071107
  4. PHENOBARBITAL TAB [Concomitant]
     Indication: EPILEPSY
     Route: 048
  5. CLONAZEPAM [Concomitant]
     Indication: EPILEPSY
     Route: 048
  6. L-CARBOCISTEINE [Concomitant]
     Indication: BRONCHITIS CHRONIC
     Route: 048
  7. TIZANIDINE HYDROCHLORIDE [Concomitant]
     Indication: SPASTIC PARALYSIS
     Route: 048

REACTIONS (3)
  - MULTI-ORGAN FAILURE [None]
  - NEUROLEPTIC MALIGNANT SYNDROME [None]
  - RHABDOMYOLYSIS [None]
